FAERS Safety Report 9336297 (Version 1)
Quarter: 2013Q2

REPORT INFORMATION
  Report Type: Report from Study
  Country: BR (occurrence: BR)
  Receive Date: 20130607
  Receipt Date: 20130607
  Transmission Date: 20140414
  Serious: Yes (Hospitalization)
  Sender: FDA-Public Use
  Company Number: BR-ROCHE-1233939

PATIENT
  Sex: Male
  Weight: 66 kg

DRUGS (2)
  1. XOLAIR [Suspect]
     Indication: ASTHMA
     Dosage: 1 AND HALF AMPOULE
     Route: 065
  2. SALBUTAMOL [Concomitant]

REACTIONS (1)
  - Feeling abnormal [Unknown]
